FAERS Safety Report 5417123-0 (Version None)
Quarter: 2007Q3

REPORT INFORMATION
  Report Type: 
  Country: None (occurrence: None)
  Receive Date: 20070718
  Receipt Date: 20070320
  Transmission Date: 20080115
  Serious: Yes (Death)
  Sender: FDA-Public Use
  Company Number: 2007022950

PATIENT
  Age: 64 Year
  Sex: Male
  Weight: 81.6 kg

DRUGS (4)
  1. CELEBREX [Suspect]
     Indication: ARTHRITIS
     Dosage: 400 MG (200 MG,2 IN 1 D)
     Dates: start: 20020101, end: 20030601
  2. TRIZON (CEFTRIAXONE SODIUM) [Concomitant]
  3. ZOCOR [Concomitant]
  4. ALTACE [Concomitant]

REACTIONS (1)
  - MYOCARDIAL INFARCTION [None]
